FAERS Safety Report 8650037 (Version 4)
Quarter: 2012Q4

REPORT INFORMATION
  Report Type: 
  Country: JP (occurrence: JP)
  Receive Date: 20120705
  Receipt Date: 20121104
  Transmission Date: 20130627
  Serious: Yes (Hospitalization)
  Sender: FDA-Public Use
  Company Number: JP-B.I. PHARMACEUTICALS,INC./RIDGEFIELD-2012-BP-14642NB

PATIENT
  Age: 76 Year
  Sex: Male
  Weight: 53 kg

DRUGS (6)
  1. PRAZAXA [Suspect]
     Indication: ATRIAL FIBRILLATION
     Dosage: 220 mg
     Route: 048
     Dates: start: 20120402
  2. URINORM [Concomitant]
     Indication: HYPERURICAEMIA
     Dosage: 25 mg
     Route: 048
     Dates: start: 20021105
  3. ATELEC [Concomitant]
     Indication: HYPERTENSION
     Dosage: 20 mg
     Route: 048
     Dates: start: 20091027
  4. CO-DIO [Concomitant]
     Indication: HYPERTENSION
     Route: 048
     Dates: start: 20110330
  5. RYTHMODAN R [Concomitant]
     Indication: ATRIAL FIBRILLATION
     Dosage: 300 mg
     Route: 048
     Dates: start: 20110817
  6. MAINTATE [Concomitant]
     Indication: HYPERTENSION
     Dosage: 2.5 mg
     Route: 048
     Dates: start: 20111014

REACTIONS (4)
  - Large intestinal haemorrhage [Recovered/Resolved]
  - Haemorrhoidal haemorrhage [Recovered/Resolved]
  - Melaena [Recovered/Resolved]
  - Haemorrhoid operation [Recovered/Resolved]
